FAERS Safety Report 6382597-8 (Version None)
Quarter: 2009Q3

REPORT INFORMATION
  Report Type: 
  Country: None (occurrence: None)
  Receive Date: 20090930
  Receipt Date: 20090924
  Transmission Date: 20100115
  Serious: Yes (Other)
  Sender: FDA-Public Use
  Company Number: B0595449A

PATIENT
  Age: 6 Year
  Sex: Female

DRUGS (1)
  1. AVAMYS [Suspect]
     Route: 055
     Dates: start: 20090501, end: 20090701

REACTIONS (2)
  - NEUTROPENIA [None]
  - PYREXIA [None]
